FAERS Safety Report 6196436-1 (Version None)
Quarter: 2009Q2

REPORT INFORMATION
  Report Type: 
  Country: None (occurrence: None)
  Receive Date: 20090518
  Receipt Date: 20090518
  Transmission Date: 20091009
  Serious: Yes (Death)
  Sender: FDA-Public Use
  Company Number: None

PATIENT
  Age: 28 Year
  Sex: Male
  Weight: 92.9874 kg

DRUGS (5)
  1. LYRICA [Suspect]
     Indication: BACK PAIN
     Dosage: 1X2/3 DAYS THEN 2X2 THEREAFTER TWICE A DAY PO
     Route: 048
     Dates: start: 20081219, end: 20081224
  2. MORPHINE [Concomitant]
  3. XANAX [Concomitant]
  4. NEURONTIN [Concomitant]
  5. PERCOCET [Concomitant]

REACTIONS (2)
  - FEELING ABNORMAL [None]
  - MALAISE [None]
